FAERS Safety Report 12073729 (Version 6)
Quarter: 2017Q4

REPORT INFORMATION
  Report Type: Report from Study
  Country: US (occurrence: US)
  Receive Date: 20160212
  Receipt Date: 20171026
  Transmission Date: 20180320
  Serious: Yes (Disabling)
  Sender: FDA-Public Use
  Company Number: PHEH2016US003369

PATIENT
  Sex: Female

DRUGS (1)
  1. GILENYA [Suspect]
     Active Substance: FINGOLIMOD HYDROCHLORIDE
     Indication: MULTIPLE SCLEROSIS
     Dosage: 0.5 MG, QD
     Route: 048
     Dates: start: 20131023

REACTIONS (14)
  - Anxiety [Unknown]
  - Multiple sclerosis [Unknown]
  - Memory impairment [Unknown]
  - Nervousness [Unknown]
  - Speech disorder [Unknown]
  - Nausea [Unknown]
  - Multiple sclerosis relapse [Unknown]
  - Nasopharyngitis [Unknown]
  - Cough [Unknown]
  - Malaise [Unknown]
  - Nasal congestion [Unknown]
  - Diarrhoea [Unknown]
  - Sinusitis [Unknown]
  - Vomiting [Unknown]
